FAERS Safety Report 8316780-9 (Version None)
Quarter: 2012Q2

REPORT INFORMATION
  Report Type: 
  Country: None (occurrence: None)
  Receive Date: 20120425
  Receipt Date: 20120409
  Transmission Date: 20120825
  Serious: Yes (Other)
  Sender: FDA-Public Use
  Company Number: JPI-P-020854

PATIENT
  Age: 43 Year
  Sex: Male
  Weight: 77.1115 kg

DRUGS (7)
  1. XYREM [Suspect]
     Indication: SOMNOLENCE
     Dosage: 4.5 GM (2.25 GM, 2 IN 1 D), ORAL
     Route: 048
     Dates: start: 20091001
  2. XYREM [Suspect]
     Indication: NARCOLEPSY
     Dosage: 4.5 GM (2.25 GM, 2 IN 1 D), ORAL
     Route: 048
     Dates: start: 20091001
  3. SUMATRIPTAN SUCCINATE [Concomitant]
  4. MODAFINIL [Concomitant]
  5. CARBAMAZEPINE [Concomitant]
  6. SERTRALINE HYDROCHLORIDE [Concomitant]
  7. TERAZOSIN HCL [Concomitant]

REACTIONS (1)
  - CARTILAGE INJURY [None]
